FAERS Safety Report 4609159-4 (Version None)
Quarter: 2005Q1

REPORT INFORMATION
  Report Type: 
  Country: None (occurrence: None)
  Receive Date: 20050314
  Receipt Date: 20050224
  Transmission Date: 20050727
  Serious: Yes (Hospitalization)
  Sender: FDA-Public Use
  Company Number: DSA_25988_2005

PATIENT
  Age: 72 Year
  Sex: Female

DRUGS (4)
  1. TAVOR [Suspect]
     Dosage: 2 MG
     Dates: start: 20040129
  2. SEROQUEL [Suspect]
     Dosage: 125 MG
     Dates: start: 20040210, end: 20040223
  3. STANGYL [Suspect]
     Dosage: 175 MG
     Dates: start: 20040213, end: 20040217
  4. TREVILOR [Concomitant]

REACTIONS (3)
  - CARDIAC FAILURE [None]
  - DRUG INTERACTION [None]
  - URINARY RETENTION [None]
